FAERS Safety Report 10614188 (Version 2)
Quarter: 2014Q4

REPORT INFORMATION
  Report Type: Report from Study
  Country: JP (occurrence: JP)
  Receive Date: 20141128
  Receipt Date: 20141128
  Transmission Date: 20150529
  Serious: Yes (Death)
  Sender: FDA-Public Use
  Company Number: PHHY2010JP49657

PATIENT
  Age: 70 Year
  Sex: Female

DRUGS (3)
  1. NO TREATMENT RECEIVED [Suspect]
     Active Substance: UNSPECIFIED INGREDIENT
     Indication: PRODUCT USED FOR UNKNOWN INDICATION
     Route: 065
  2. GLIVEC [Suspect]
     Active Substance: IMATINIB MESYLATE
     Indication: CHRONIC MYELOID LEUKAEMIA
     Dosage: UNK
     Route: 048
     Dates: start: 20090330, end: 20091126
  3. GLIVEC [Suspect]
     Active Substance: IMATINIB MESYLATE
     Dosage: 100 MG, QD
     Route: 048
     Dates: start: 201101

REACTIONS (4)
  - White blood cell count decreased [Fatal]
  - Pancytopenia [Fatal]
  - Platelet count decreased [Fatal]
  - Haematocrit decreased [Unknown]

NARRATIVE: CASE EVENT DATE: 20091030
